FAERS Safety Report 4594794-2 (Version None)
Quarter: 2005Q1

REPORT INFORMATION
  Report Type: 
  Country: None (occurrence: None)
  Receive Date: 20050223
  Receipt Date: 20050211
  Transmission Date: 20050727
  Serious: Yes (Hospitalization)
  Sender: FDA-Public Use
  Company Number: 21977

PATIENT
  Age: 81 Year
  Sex: Male
  Weight: 77.1115 kg

DRUGS (3)
  1. NIASPAN [Suspect]
     Indication: BLOOD CHOLESTEROL INCREASED
     Dosage: 500 MG QHS PO
     Route: 048
     Dates: start: 20040101, end: 20050205
  2. ASPIRIN [Concomitant]
  3. COZAAR [Concomitant]

REACTIONS (3)
  - CHEST PAIN [None]
  - FLUSHING [None]
  - HEART RATE INCREASED [None]
